FAERS Safety Report 7134445-6 (Version None)
Quarter: 2010Q4

REPORT INFORMATION
  Report Type: 
  Country: None (occurrence: None)
  Receive Date: 20101203
  Receipt Date: 20101130
  Transmission Date: 20110411
  Serious: Yes (Hospitalization)
  Sender: FDA-Public Use
  Company Number: PHHO2010DE17069

PATIENT
  Sex: Male
  Weight: 77 kg

DRUGS (1)
  1. FTY 720 FTY+ [Suspect]
     Indication: MULTIPLE SCLEROSIS
     Dosage: UNK
     Route: 048
     Dates: start: 20100909

REACTIONS (9)
  - ABASIA [None]
  - ASTHENIA [None]
  - COUGH [None]
  - GAIT DISTURBANCE [None]
  - INFLUENZA [None]
  - MALAISE [None]
  - MULTIPLE SCLEROSIS RELAPSE [None]
  - NASOPHARYNGITIS [None]
  - RHINITIS [None]
